FAERS Safety Report 5462314-6 (Version None)
Quarter: 2007Q3

REPORT INFORMATION
  Report Type: 
  Country: None (occurrence: None)
  Receive Date: 20070920
  Receipt Date: 20070622
  Transmission Date: 20080115
  Serious: No
  Sender: FDA-Public Use
  Company Number: A0659151A

PATIENT
  Age: 38 Year
  Sex: Female

DRUGS (1)
  1. ABREVA [Suspect]
     Dates: start: 20070610, end: 20070620

REACTIONS (4)
  - BURNING SENSATION [None]
  - HYPERSENSITIVITY [None]
  - LIP DRY [None]
  - PRURITUS [None]
